FAERS Safety Report 21405493 (Version 1)
Quarter: 2022Q4

REPORT INFORMATION
  Report Type: Spontaneous
  Country: DK (occurrence: DK)
  Receive Date: 20221004
  Receipt Date: 20221004
  Transmission Date: 20230113
  Serious: Yes (Disabling)
  Sender: FDA-Public Use
  Company Number: None

PATIENT
  Age: 4 Decade
  Sex: Female

DRUGS (4)
  1. SOLU-MEDROL [Suspect]
     Active Substance: METHYLPREDNISOLONE SODIUM SUCCINATE
     Indication: Colitis ulcerative
     Dosage: 80 MG, 1X/DAY
     Route: 042
     Dates: start: 20170905, end: 20170910
  2. PREDNISOLONE [Suspect]
     Active Substance: PREDNISOLONE
     Indication: Colitis ulcerative
     Dosage: DOSAGE: UNKNOWN BUT HIGH. STRENGTH: UNKNOWN
     Dates: start: 20170904, end: 20170904
  3. PREDNISOLONE [Suspect]
     Active Substance: PREDNISOLONE
     Dosage: 75 MG, 1X/DAY
     Route: 048
     Dates: start: 20170911, end: 20170912
  4. PREDNISOLONE [Suspect]
     Active Substance: PREDNISOLONE
     Dosage: FROM 13SEP2017 50MG ONCE DAILY, GRADUALLY REDUCED. STRENGTH: UNKNOWN
     Dates: start: 20170913, end: 201712

REACTIONS (4)
  - Osteonecrosis [Recovered/Resolved]
  - Joint swelling [Recovered/Resolved]
  - Cushingoid [Unknown]
  - Arthralgia [Unknown]

NARRATIVE: CASE EVENT DATE: 20170901
